FAERS Safety Report 20920282 (Version 1)
Quarter: 2022Q2

REPORT INFORMATION
  Report Type: Spontaneous
  Country: JP (occurrence: JP)
  Receive Date: 20220606
  Receipt Date: 20220606
  Transmission Date: 20220720
  Serious: Yes (Other)
  Sender: FDA-Public Use
  Company Number: JP-ELI_LILLY_AND_COMPANY-JP202205013224

PATIENT

DRUGS (1)
  1. BAQSIMI [Suspect]
     Active Substance: GLUCAGON
     Indication: Hypoglycaemia
     Route: 045

REACTIONS (1)
  - Hypoglycaemic unconsciousness [Not Recovered/Not Resolved]

NARRATIVE: CASE EVENT DATE: 20220525
